FAERS Safety Report 10975986 (Version 1)
Quarter: 2015Q2

REPORT INFORMATION
  Report Type: Other
  Country: GB (occurrence: GB)
  Receive Date: 20150401
  Receipt Date: 20150401
  Transmission Date: 20150821
  Serious: Yes (Other)
  Sender: FDA-Public Use
  Company Number: GB-MYLANLABS-2015M1009614

PATIENT

DRUGS (3)
  1. AMETOP [Concomitant]
     Dosage: UNK, (USE AS DIRECTED)
     Dates: start: 20150109, end: 20150110
  2. IBUPROFEN. [Suspect]
     Active Substance: IBUPROFEN
     Dosage: UNK
     Dates: start: 20150305
  3. LACTULOSE. [Concomitant]
     Active Substance: LACTULOSE
     Dosage: 5 ML, BID
     Dates: start: 20150302, end: 20150312

REACTIONS (2)
  - Lip swelling [Recovered/Resolved]
  - Eyelid oedema [Unknown]

NARRATIVE: CASE EVENT DATE: 20150312
